FAERS Safety Report 19752296 (Version 1)
Quarter: 2021Q3

REPORT INFORMATION
  Report Type: Spontaneous
  Country: US (occurrence: US)
  Receive Date: 20210827
  Receipt Date: 20210827
  Transmission Date: 20211014
  Serious: No
  Sender: FDA-Public Use
  Company Number: US-ESPERIONTHERAPEUTICS-2021USA01664

PATIENT
  Age: 86 Year
  Sex: Female
  Weight: 92.06 kg

DRUGS (2)
  1. NEXLETOL [Suspect]
     Active Substance: BEMPEDOIC ACID
     Indication: BLOOD CHOLESTEROL ABNORMAL
     Dosage: 1 DOSAGE FORM (TABLET), BID
     Route: 048
     Dates: end: 20210818
  2. NEXLETOL [Suspect]
     Active Substance: BEMPEDOIC ACID
     Dosage: 1 DOSAGE FORM, QD
     Route: 065

REACTIONS (1)
  - Off label use [Recovered/Resolved]
